FAERS Safety Report 14305960 (Version 6)
Quarter: 2020Q1

REPORT INFORMATION
  Report Type: Spontaneous
  Country: US (occurrence: US)
  Receive Date: 20171219
  Receipt Date: 20200228
  Transmission Date: 20200409
  Serious: Yes (Hospitalization)
  Sender: FDA-Public Use
  Company Number: US-PFIZER INC-2017537054

PATIENT
  Age: 60 Year
  Sex: Female

DRUGS (10)
  1. KENALOG [Concomitant]
     Active Substance: TRIAMCINOLONE ACETONIDE
     Dosage: UNK
  2. OCEAN SALINE NASAL SPRAY [Concomitant]
     Active Substance: SODIUM CHLORIDE
     Dosage: UNK
  3. SERTRALINE [Concomitant]
     Active Substance: SERTRALINE HYDROCHLORIDE
     Dosage: 100 MG, 1X/DAY
  4. TRAMADOL AND ACETAMINOPHEN [Concomitant]
     Active Substance: ACETAMINOPHEN\TRAMADOL HYDROCHLORIDE
     Indication: PAIN
     Dosage: UNK, AS NEEDED (PAR / CR EVERY 4 HOURS AS NEEDED UP TO MAX 12 DAILY)
  5. ASPIRIN 81 [Concomitant]
     Active Substance: ASPIRIN
     Dosage: 81 MG, 1X/DAY
  6. DIOVAN [Concomitant]
     Active Substance: VALSARTAN
     Dosage: 320 MG, 1X/DAY
  7. HYDROCODONE/ACETAMINOPHEN [Concomitant]
     Active Substance: ACETAMINOPHEN\HYDROCODONE
     Indication: PAIN
     Dosage: UNK, AS NEEDED (HYDROCODONE: 5)(ACETAMINOHEN: 500) (5-500 TAB WATS/ CR 2 EVERY 4 HOURS AS NEEDED)
  8. CELECOXIB. [Suspect]
     Active Substance: CELECOXIB
     Indication: ARTHRITIS
     Dosage: 200 MG, 1X/DAY
     Dates: start: 20171105
  9. HYDROCHLOROTH [Concomitant]
     Active Substance: HYDROCHLOROTHIAZIDE
     Dosage: 25 MG, 1X/DAY
  10. ALBUTEROL HFA [Concomitant]
     Active Substance: ALBUTEROL SULFATE
     Dosage: UNK, AS NEEDED (108 MCG/ ACT INHALER AS NEEDED)

REACTIONS (11)
  - Myalgia [Not Recovered/Not Resolved]
  - Joint stiffness [Not Recovered/Not Resolved]
  - Inflammation [Not Recovered/Not Resolved]
  - Musculoskeletal stiffness [Not Recovered/Not Resolved]
  - Feeling hot [Not Recovered/Not Resolved]
  - Flatulence [Not Recovered/Not Resolved]
  - Joint swelling [Not Recovered/Not Resolved]
  - Dizziness [Not Recovered/Not Resolved]
  - Abdominal discomfort [Not Recovered/Not Resolved]
  - Malaise [Unknown]
  - Drug hypersensitivity [Unknown]
